FAERS Safety Report 15101687 (Version 1)
Quarter: 2018Q3

REPORT INFORMATION
  Report Type: Spontaneous
  Country: US (occurrence: US)
  Receive Date: 20180703
  Receipt Date: 20180703
  Transmission Date: 20181010
  Serious: No
  Sender: FDA-Public Use
  Company Number: US-009507513-1806USA012046

PATIENT
  Age: 23 Year
  Sex: Female
  Weight: 79.37 kg

DRUGS (1)
  1. NEXPLANON [Suspect]
     Active Substance: ETONOGESTREL
     Indication: CONTRACEPTION
     Dosage: 1 ROD/4 YEAR IMPLANT, INSERTED INTO UPPER RIGHT ARM
     Route: 059
     Dates: start: 201401

REACTIONS (8)
  - Paraesthesia [Not Recovered/Not Resolved]
  - Device deployment issue [Not Recovered/Not Resolved]
  - Hypoaesthesia [Not Recovered/Not Resolved]
  - Complication associated with device [Recovered/Resolved]
  - Pain [Not Recovered/Not Resolved]
  - Incorrect drug administration duration [Unknown]
  - Complication of device removal [Not Recovered/Not Resolved]
  - Burning sensation [Not Recovered/Not Resolved]

NARRATIVE: CASE EVENT DATE: 201401
